FAERS Safety Report 15745774 (Version 1)
Quarter: 2018Q4

REPORT INFORMATION
  Report Type: Spontaneous
  Country: JP (occurrence: JP)
  Receive Date: 20181220
  Receipt Date: 20181220
  Transmission Date: 20190205
  Serious: Yes (Hospitalization, Other)
  Sender: FDA-Public Use
  Company Number: JP-BAYER-2018-226173

PATIENT
  Age: 91 Year
  Sex: Female
  Weight: 41.2 kg

DRUGS (6)
  1. BAYASPIRIN 100 MG [Suspect]
     Active Substance: ASPIRIN
     Dosage: 100 MG, QD
     Route: 048
  2. OMEPRAZOLE. [Concomitant]
     Active Substance: OMEPRAZOLE
     Dosage: 20 MG, QD
  3. AZILVA [Concomitant]
     Active Substance: AZILSARTAN KAMEDOXOMIL
     Dosage: 10 MG, QD
  4. AMLODIPINE [Concomitant]
     Active Substance: AMLODIPINE BESYLATE
     Dosage: 2.5 MG, QD
  5. ASPARA K [Concomitant]
     Active Substance: POTASSIUM ASPARTATE
  6. BENET [Concomitant]
     Active Substance: RISEDRONATE SODIUM
     Dosage: 7.5 MG, QD

REACTIONS (2)
  - Cholangitis infective [None]
  - Haemobilia [Recovered/Resolved]

NARRATIVE: CASE EVENT DATE: 20180419
